FAERS Safety Report 7670777-0 (Version None)
Quarter: 2011Q3

REPORT INFORMATION
  Report Type: 
  Country: None (occurrence: None)
  Receive Date: 20110809
  Receipt Date: 20110803
  Transmission Date: 20111222
  Serious: Yes (Life-Threatening, Hospitalization, Other)
  Sender: FDA-Public Use
  Company Number: US-SHIRE-ALL1-2011-02070

PATIENT
  Sex: Female
  Weight: 24.671 kg

DRUGS (6)
  1. VYVANSE [Suspect]
     Dosage: 20 MG, 1X/DAY:QD
     Route: 048
     Dates: start: 20110425, end: 20110501
  2. VYVANSE [Suspect]
     Dosage: 30 MG, 1X/DAY:QD
     Route: 048
     Dates: start: 20110228, end: 20110425
  3. INTUNIV [Suspect]
     Indication: PRODUCT USED FOR UNKNOWN INDICATION
     Dosage: 1 MG, UNKNOWN
     Dates: start: 20110110
  4. INTUNIV [Suspect]
     Dosage: 1 MG, UNKNOWN
  5. VYVANSE [Suspect]
     Indication: ATTENTION DEFICIT/HYPERACTIVITY DISORDER
     Dosage: 20 MG, 1X/DAY:QD
     Route: 048
     Dates: start: 20110110, end: 20110228
  6. INTUNIV [Suspect]
     Dosage: 2 MG, UNKNOWN

REACTIONS (3)
  - AGGRESSION [None]
  - SUICIDAL IDEATION [None]
  - IMPULSIVE BEHAVIOUR [None]
